FAERS Safety Report 13418236 (Version 1)
Quarter: 2017Q2

REPORT INFORMATION
  Report Type: Spontaneous
  Country: US (occurrence: US)
  Receive Date: 20170407
  Receipt Date: 20170407
  Transmission Date: 20170830
  Serious: No
  Sender: FDA-Public Use
  Company Number: US-PRINSTON PHARMACEUTICAL INC.-2016PRN00335

PATIENT
  Age: 74 Year
  Sex: Male
  Weight: 73.92 kg

DRUGS (8)
  1. BENAZEPRIL HYDROCHLORIDE. [Suspect]
     Active Substance: BENAZEPRIL HYDROCHLORIDE
     Indication: HYPERTENSION
     Dosage: 15 MG, 1X/DAY
     Route: 048
     Dates: start: 20161121, end: 20161121
  2. LISINOPRIL. [Suspect]
     Active Substance: LISINOPRIL
  3. WALMART MULTIVITAMIN PILL FOR 50+ [Concomitant]
  4. LOW DOSE ASPIRIN [Concomitant]
     Active Substance: ASPIRIN
     Dosage: 81 MG, 1X/DAY
  5. BENAZEPRIL HYDROCHLORIDE. [Suspect]
     Active Substance: BENAZEPRIL HYDROCHLORIDE
     Dosage: 15 MG, 1X/DAY
     Route: 048
     Dates: start: 20161125, end: 20161125
  6. BENADRYL [Concomitant]
     Active Substance: DIPHENHYDRAMINE HYDROCHLORIDE
  7. FISH OIL [Concomitant]
     Active Substance: FISH OIL
  8. BENAZEPRIL HYDROCHLORIDE. [Suspect]
     Active Substance: BENAZEPRIL HYDROCHLORIDE
     Dosage: 15 MG, 1X/DAY
     Route: 048
     Dates: start: 20161123, end: 20161123

REACTIONS (6)
  - Fear of disease [Recovered/Resolved]
  - Feeling hot [Recovered/Resolved]
  - Heart rate increased [Recovered/Resolved]
  - Swelling face [Recovered/Resolved]
  - Tinnitus [Recovered/Resolved]
  - Headache [Recovered/Resolved]

NARRATIVE: CASE EVENT DATE: 201611
